FAERS Safety Report 7814599-6 (Version None)
Quarter: 2011Q4

REPORT INFORMATION
  Report Type: 
  Country: None (occurrence: None)
  Receive Date: 20111012
  Receipt Date: 20110927
  Transmission Date: 20120403
  Serious: Yes (Other)
  Sender: FDA-Public Use
  Company Number: 2011S1000318

PATIENT
  Age: 27 Day
  Sex: Male
  Weight: 0.89 kg

DRUGS (9)
  1. NITRIC OXIDE [Suspect]
     Indication: PERSISTENT FOETAL CIRCULATION
     Dosage: 18 PPM;CONT;INH;20 PPM;CON;INH;16 PPM;CONT;INH;10 PPM;CONT;INH;3.9 PPM;CONT;INH;1.9 PPM;CONT;INH
     Route: 055
     Dates: start: 20110926, end: 20110926
  2. NITRIC OXIDE [Suspect]
     Indication: PERSISTENT FOETAL CIRCULATION
     Dosage: 18 PPM;CONT;INH;20 PPM;CON;INH;16 PPM;CONT;INH;10 PPM;CONT;INH;3.9 PPM;CONT;INH;1.9 PPM;CONT;INH
     Route: 055
     Dates: start: 20110924, end: 20110924
  3. NITRIC OXIDE [Suspect]
     Indication: PERSISTENT FOETAL CIRCULATION
     Dosage: 18 PPM;CONT;INH;20 PPM;CON;INH;16 PPM;CONT;INH;10 PPM;CONT;INH;3.9 PPM;CONT;INH;1.9 PPM;CONT;INH
     Route: 055
     Dates: start: 20110926, end: 20110926
  4. NITRIC OXIDE [Suspect]
     Indication: PERSISTENT FOETAL CIRCULATION
     Dosage: 18 PPM;CONT;INH;20 PPM;CON;INH;16 PPM;CONT;INH;10 PPM;CONT;INH;3.9 PPM;CONT;INH;1.9 PPM;CONT;INH
     Route: 055
     Dates: start: 20110925, end: 20110926
  5. NITRIC OXIDE [Suspect]
     Indication: PERSISTENT FOETAL CIRCULATION
     Dosage: 18 PPM;CONT;INH;20 PPM;CON;INH;16 PPM;CONT;INH;10 PPM;CONT;INH;3.9 PPM;CONT;INH;1.9 PPM;CONT;INH
     Route: 055
     Dates: start: 20110926, end: 20110926
  6. NITRIC OXIDE [Suspect]
     Indication: PERSISTENT FOETAL CIRCULATION
     Dosage: 18 PPM;CONT;INH;20 PPM;CON;INH;16 PPM;CONT;INH;10 PPM;CONT;INH;3.9 PPM;CONT;INH;1.9 PPM;CONT;INH
     Route: 055
     Dates: start: 20110926, end: 20110926
  7. ANTIBIOTICS [Concomitant]
  8. FUROSEMIDE [Concomitant]
  9. MORPHINE SULFATE [Concomitant]

REACTIONS (2)
  - OXYGEN SATURATION DECREASED [None]
  - DEVICE FAILURE [None]
